FAERS Safety Report 24246622 (Version 2)
Quarter: 2025Q2

REPORT INFORMATION
  Report Type: Spontaneous
  Country: JP (occurrence: JP)
  Receive Date: 20240825
  Receipt Date: 20250512
  Transmission Date: 20250717
  Serious: Yes (Other)
  Sender: BRISTOL-MYERS SQUIBB COMPANY
  Company Number: JP-TAIHO-2024-007944

PATIENT
  Age: 71 Year
  Sex: Male

DRUGS (2)
  1. ABRAXANE [Suspect]
     Active Substance: PACLITAXEL
     Indication: Lymphoma
     Route: 041
  2. CARBOPLATIN [Suspect]
     Active Substance: CARBOPLATIN
     Indication: Lymphoma

REACTIONS (2)
  - Myelodysplastic syndrome [Unknown]
  - Off label use [Unknown]
